FAERS Safety Report 10494109 (Version 2)
Quarter: 2015Q1

REPORT INFORMATION
  Report Type: Spontaneous
  Country: SV (occurrence: None)
  Receive Date: 20141001
  Receipt Date: 20150311
  Transmission Date: 20150720
  Serious: Yes (Life-Threatening, Hospitalization)
  Sender: FDA-Public Use
  Company Number: 2014SI007705

PATIENT
  Sex: Female

DRUGS (1)
  1. RESPIRA (ALPHA - PROTESINASE INHIBITOR) SOLUTION FOR INJECTION [Suspect]
     Active Substance: .ALPHA.1-PROTEINASE INHIBITOR HUMAN
     Indication: PRODUCT USED FOR UNKNOWN INDICATION
     Dosage: UNK, UNK, 1/WEEK
     Route: 042

REACTIONS (6)
  - Enterobacter sepsis [None]
  - Sepsis [None]
  - Wrong technique in drug usage process [None]
  - Respiratory failure [None]
  - Immunosuppression [None]
  - Intentional product misuse [None]
